FAERS Safety Report 19283165 (Version 2)
Quarter: 2021Q3

REPORT INFORMATION
  Report Type: Report from Study
  Country: US (occurrence: US)
  Receive Date: 20210520
  Receipt Date: 20210803
  Transmission Date: 20211014
  Serious: No
  Sender: FDA-Public Use
  Company Number: NVSC2021US113753

PATIENT
  Age: 68 Year

DRUGS (1)
  1. ENTRESTO [Suspect]
     Active Substance: SACUBITRIL\VALSARTAN
     Indication: PRODUCT USED FOR UNKNOWN INDICATION
     Dosage: UNK UNK, BID
     Route: 048
     Dates: start: 201905

REACTIONS (5)
  - Illness [Unknown]
  - Weight decreased [Unknown]
  - Arthralgia [Unknown]
  - Pyrexia [Unknown]
  - Rash [Unknown]

NARRATIVE: CASE EVENT DATE: 202106
